FAERS Safety Report 8428270-3 (Version None)
Quarter: 2012Q2

REPORT INFORMATION
  Report Type: 
  Country: None (occurrence: None)
  Receive Date: 20120611
  Receipt Date: 20120424
  Transmission Date: 20120825
  Serious: No
  Sender: FDA-Public Use
  Company Number: US-ASTRAZENECA-2012SE22368

PATIENT
  Age: 27 Year
  Sex: Male
  Weight: 90.7 kg

DRUGS (3)
  1. ZEGERID [Concomitant]
     Indication: DYSPEPSIA
  2. OMEPRAZOLE [Concomitant]
     Indication: DYSPEPSIA
  3. BUDESONIDE [Suspect]
     Indication: EOSINOPHILIC OESOPHAGITIS
     Dosage: DAILY
     Route: 055
     Dates: start: 20090101, end: 20090101

REACTIONS (3)
  - MUSCULOSKELETAL STIFFNESS [None]
  - DYSPEPSIA [None]
  - SKIN SENSITISATION [None]
